FAERS Safety Report 17667275 (Version 1)
Quarter: 2020Q2

REPORT INFORMATION
  Report Type: Spontaneous
  Country: US (occurrence: US)
  Receive Date: 20200414
  Receipt Date: 20200414
  Transmission Date: 20200713
  Serious: Yes (Other)
  Sender: FDA-Public Use
  Company Number: US-BAYER-2020-061223

PATIENT
  Age: 57 Year
  Sex: Male

DRUGS (3)
  1. WARFARIN [Interacting]
     Active Substance: WARFARIN
  2. ACETYLSALICYLIC ACID [Suspect]
     Active Substance: ASPIRIN
  3. CLOPIDOGREL [Interacting]
     Active Substance: CLOPIDOGREL BISULFATE

REACTIONS (4)
  - Drug ineffective [None]
  - Lower gastrointestinal haemorrhage [None]
  - Medical device site thrombosis [Recovered/Resolved]
  - Labelled drug-drug interaction medication error [None]
